FAERS Safety Report 20393636 (Version 2)
Quarter: 2022Q4

REPORT INFORMATION
  Report Type: Spontaneous
  Country: MY (occurrence: None)
  Receive Date: 20220128
  Receipt Date: 20221219
  Transmission Date: 20230113
  Serious: Yes (Other)
  Sender: FDA-Public Use
  Company Number: MY-ROCHE-3006935

PATIENT
  Sex: Male

DRUGS (1)
  1. ALECENSA [Suspect]
     Active Substance: ALECTINIB HYDROCHLORIDE
     Indication: Product used for unknown indication
     Route: 065

REACTIONS (8)
  - Brain neoplasm [Unknown]
  - Diplopia [Unknown]
  - Presbyopia [Unknown]
  - Eye pain [Unknown]
  - Impaired work ability [Unknown]
  - Fatigue [Unknown]
  - Miliaria [Unknown]
  - Swelling face [Unknown]
